FAERS Safety Report 16188971 (Version 1)
Quarter: 2019Q2

REPORT INFORMATION
  Report Type: Spontaneous
  Country: PK (occurrence: PK)
  Receive Date: 20190411
  Receipt Date: 20190411
  Transmission Date: 20190711
  Serious: No
  Sender: FDA-Public Use
  Company Number: None

PATIENT
  Age: 34 Year
  Sex: Male
  Weight: 70 kg

DRUGS (4)
  1. GAVISCON [Concomitant]
     Active Substance: ALUMINUM HYDROXIDE\MAGNESIUM CARBONATE
  2. SURBEX Z [Concomitant]
  3. PANADOL EXTRA [Concomitant]
     Active Substance: ACETAMINOPHEN\CAFFEINE
  4. LANZIT [Suspect]
     Active Substance: LANSOPRAZOLE
     Indication: GASTROOESOPHAGEAL REFLUX DISEASE
     Dosage: ?          QUANTITY:1 CAPSULE(S);?
     Route: 048

REACTIONS (1)
  - Swelling face [None]

NARRATIVE: CASE EVENT DATE: 20180813
